FAERS Safety Report 5472203-9 (Version None)
Quarter: 2007Q3

REPORT INFORMATION
  Report Type: 
  Country: None (occurrence: None)
  Receive Date: 20070926
  Receipt Date: 20070924
  Transmission Date: 20080115
  Serious: Yes (Other)
  Sender: FDA-Public Use
  Company Number: JPI-P-002211

PATIENT
  Sex: Female

DRUGS (4)
  1. XYREM [Suspect]
     Indication: CATAPLEXY
     Dosage: 6 GM, TOTAQL, ORAL; 9 GM, TOTAL, ORAL
     Route: 048
     Dates: start: 20041201
  2. XYREM [Suspect]
     Indication: NARCOLEPSY
     Dosage: 6 GM, TOTAQL, ORAL; 9 GM, TOTAL, ORAL
     Route: 048
     Dates: start: 20041201
  3. XYREM [Suspect]
     Indication: CATAPLEXY
     Dosage: 6 GM, TOTAQL, ORAL; 9 GM, TOTAL, ORAL
     Route: 048
     Dates: start: 20041201
  4. XYREM [Suspect]
     Indication: NARCOLEPSY
     Dosage: 6 GM, TOTAQL, ORAL; 9 GM, TOTAL, ORAL
     Route: 048
     Dates: start: 20041201

REACTIONS (3)
  - CATAPLEXY [None]
  - SOMNOLENCE [None]
  - VICTIM OF SEXUAL ABUSE [None]
